FAERS Safety Report 13073355 (Version 1)
Quarter: 2016Q4

REPORT INFORMATION
  Report Type: Spontaneous
  Country: NL (occurrence: NL)
  Receive Date: 20161229
  Receipt Date: 20161229
  Transmission Date: 20170207
  Serious: Yes (Other)
  Sender: FDA-Public Use
  Company Number: NL-BAUSCH-BL-2016-032636

PATIENT
  Age: 11 Year
  Sex: Female

DRUGS (8)
  1. PROTOPIC [Suspect]
     Active Substance: TACROLIMUS
     Indication: ECZEMA
     Route: 065
     Dates: start: 2000
  2. TRIAMCINOLONE ACETONIDE. [Suspect]
     Active Substance: TRIAMCINOLONE ACETONIDE
     Indication: ECZEMA
     Route: 065
     Dates: start: 2000
  3. PREDNISOLON [Suspect]
     Active Substance: PREDNISOLONE
     Indication: ECZEMA
     Route: 048
     Dates: start: 2000
  4. EMOVATE (CLOBETASONE BUTYRATE) [Suspect]
     Active Substance: CLOBETASONE BUTYRATE
     Indication: ECZEMA
     Route: 065
     Dates: start: 2000
  5. DAKTACORT [Suspect]
     Active Substance: HYDROCORTISONE\MICONAZOLE NITRATE
     Indication: ECZEMA
     Route: 065
     Dates: start: 2000
  6. TOPICORTE [Suspect]
     Active Substance: DESOXIMETASONE
     Indication: ECZEMA
     Route: 065
     Dates: start: 2000
  7. HYDROCORTISON [Suspect]
     Active Substance: HYDROCORTISONE
     Indication: ECZEMA
     Route: 065
     Dates: start: 2000
  8. BETAMETHASONE. [Suspect]
     Active Substance: BETAMETHASONE
     Indication: ECZEMA
     Route: 065
     Dates: start: 2000

REACTIONS (1)
  - Steroid withdrawal syndrome [Not Recovered/Not Resolved]

NARRATIVE: CASE EVENT DATE: 20000101
